FAERS Safety Report 5807066-2 (Version None)
Quarter: 2008Q3

REPORT INFORMATION
  Report Type: 
  Country: None (occurrence: None)
  Receive Date: 20080711
  Receipt Date: 20080425
  Transmission Date: 20090109
  Serious: No
  Sender: FDA-Public Use
  Company Number: US-BAYER-200821979NA

PATIENT
  Sex: Female
  Weight: 51 kg

DRUGS (1)
  1. MIRENA [Suspect]
     Indication: CONTRACEPTION
     Route: 015
     Dates: start: 20071221, end: 20080401

REACTIONS (4)
  - DYSPAREUNIA [None]
  - MOOD SWINGS [None]
  - VAGINAL HAEMORRHAGE [None]
  - WEIGHT INCREASED [None]
